FAERS Safety Report 5021976-8 (Version None)
Quarter: 2006Q2

REPORT INFORMATION
  Report Type: 
  Country: None (occurrence: None)
  Receive Date: 20060609
  Receipt Date: 20060601
  Transmission Date: 20061013
  Serious: Yes (Death)
  Sender: FDA-Public Use
  Company Number: US-JNJFOC-20050703997

PATIENT
  Sex: Male
  Weight: 102.51 kg

DRUGS (11)
  1. RISPERDAL [Suspect]
  2. RISPERDAL [Suspect]
     Dosage: 1 MG IN AM, 3 MG IN PM
  3. RISPERDAL [Suspect]
  4. RISPERDAL [Suspect]
     Indication: ANXIETY DISORDER
     Dosage: 0.5 MG IN AM, 1 MG IN PM
  5. RISPERDAL [Suspect]
     Indication: AUTISM
  6. NEURONTIN [Concomitant]
  7. NEURONTIN [Concomitant]
     Indication: ANXIETY DISORDER
  8. NEURONTIN [Concomitant]
     Indication: AUTISM
  9. TRILEPTAL [Concomitant]
     Indication: MOOD ALTERED
  10. TOPAMAX [Concomitant]
  11. TOPAMAX [Concomitant]

REACTIONS (2)
  - AGGRESSION [None]
  - TEMPERATURE INTOLERANCE [None]
